FAERS Safety Report 24967625 (Version 3)
Quarter: 2025Q1

REPORT INFORMATION
  Report Type: Spontaneous
  Country: US (occurrence: US)
  Receive Date: 20250214
  Receipt Date: 20250310
  Transmission Date: 20250408
  Serious: No
  Sender: ROCHE
  Company Number: US-ROCHE-10000203079

PATIENT
  Age: 69 Year
  Sex: Male

DRUGS (12)
  1. XOLAIR [Suspect]
     Active Substance: OMALIZUMAB
     Indication: Food allergy
     Dosage: DOSE IS 375MG IN THE FORM OF (2) 150MG PFS AND (1) 75MG PFS EVERY (2) WEEKS.
     Route: 058
  2. XOLAIR [Suspect]
     Active Substance: OMALIZUMAB
     Indication: Hypersensitivity
     Dosage: DOSE IS 375MG IN THE FORM OF (2) 150MG PFS AND (1) 75MG PFS EVERY (2) WEEKS.
     Route: 058
  3. XOLAIR [Suspect]
     Active Substance: OMALIZUMAB
     Indication: Rhinitis allergic
     Dosage: DOSE IS 375MG IN THE FORM OF (2) 150MG PFS AND (1) 75MG PFS EVERY (2) WEEKS.
     Route: 058
  4. XOLAIR [Suspect]
     Active Substance: OMALIZUMAB
     Indication: Asthma
     Dosage: DOSE IS 375MG IN THE FORM OF (2) 150MG PFS AND (1) 75MG PFS EVERY (2) WEEKS.
     Route: 058
  5. XOLAIR [Suspect]
     Active Substance: OMALIZUMAB
     Dosage: DOSE IS 375MG IN THE FORM OF (2) 150MG PFS AND (1) 75MG PFS EVERY (2) WEEKS.
     Route: 058
  6. XOLAIR [Suspect]
     Active Substance: OMALIZUMAB
     Dosage: DOSE IS 375MG IN THE FORM OF (2) 150MG PFS AND (1) 75MG PFS EVERY (2) WEEKS.
     Route: 058
  7. DUPIXENT [Concomitant]
     Active Substance: DUPILUMAB
  8. DUPIXENT [Concomitant]
     Active Substance: DUPILUMAB
  9. DUPIXENT [Concomitant]
     Active Substance: DUPILUMAB
  10. DUPIXENT [Concomitant]
     Active Substance: DUPILUMAB
  11. DUPIXENT [Concomitant]
     Active Substance: DUPILUMAB
  12. DUPIXENT [Concomitant]
     Active Substance: DUPILUMAB

REACTIONS (4)
  - Underdose [Unknown]
  - Product complaint [Unknown]
  - No adverse event [Unknown]
  - Syringe issue [Unknown]

NARRATIVE: CASE EVENT DATE: 20250130
